FAERS Safety Report 12379190 (Version 1)
Quarter: 2016Q2

REPORT INFORMATION
  Report Type: Spontaneous
  Country: US (occurrence: US)
  Receive Date: 20160517
  Receipt Date: 20160517
  Transmission Date: 20160815
  Serious: No
  Sender: FDA-Public Use
  Company Number: US-RELYPSA-RLY2016000324

PATIENT

DRUGS (15)
  1. ASPIRIN 81 [Concomitant]
     Active Substance: ASPIRIN
  2. LOVAZA [Concomitant]
     Active Substance: OMEGA-3-ACID ETHYL ESTERS
  3. RENVELA [Concomitant]
     Active Substance: SEVELAMER CARBONATE
  4. FLOMAX [Concomitant]
     Active Substance: TAMSULOSIN HYDROCHLORIDE
  5. LACTULOSE. [Concomitant]
     Active Substance: LACTULOSE
  6. NIFEDIPINE. [Concomitant]
     Active Substance: NIFEDIPINE
  7. VELTASSA [Suspect]
     Active Substance: PATIROMER
     Indication: HYPERKALAEMIA
     Dosage: 8.4 G, QD
     Route: 048
     Dates: start: 20160322
  8. DIOVAN HCT [Concomitant]
     Active Substance: HYDROCHLOROTHIAZIDE\VALSARTAN
  9. NEXIUM [Concomitant]
     Active Substance: ESOMEPRAZOLE MAGNESIUM
  10. ATROVENT HFA [Concomitant]
     Active Substance: IPRATROPIUM BROMIDE
  11. CARVEDILOL. [Concomitant]
     Active Substance: CARVEDILOL
  12. ZOCOR [Concomitant]
     Active Substance: SIMVASTATIN
     Dosage: UNK
     Route: 048
  13. ALLOPURINOL. [Concomitant]
     Active Substance: ALLOPURINOL
  14. SENSIPAR [Concomitant]
     Active Substance: CINACALCET HYDROCHLORIDE
  15. VITAMIN D                          /00107901/ [Concomitant]
     Active Substance: ERGOCALCIFEROL

REACTIONS (1)
  - Incorrect drug administration duration [Not Recovered/Not Resolved]
